FAERS Safety Report 24757749 (Version 2)
Quarter: 2025Q1

REPORT INFORMATION
  Report Type: Spontaneous
  Country: CA (occurrence: CA)
  Receive Date: 20241220
  Receipt Date: 20250218
  Transmission Date: 20250409
  Serious: No
  Sender: Unknown Manufacturer
  Company Number: CA-862174955-ML2024-06650

PATIENT
  Age: 76 Year
  Sex: Male

DRUGS (1)
  1. RANOLAZINE [Suspect]
     Active Substance: RANOLAZINE
     Indication: Angina pectoris
     Route: 048
     Dates: start: 20220301

REACTIONS (1)
  - No adverse event [Unknown]
